FAERS Safety Report 7773409-6 (Version None)
Quarter: 2011Q3

REPORT INFORMATION
  Report Type: 
  Country: None (occurrence: None)
  Receive Date: 20110922
  Receipt Date: 20110914
  Transmission Date: 20111222
  Serious: Yes (Hospitalization)
  Sender: FDA-Public Use
  Company Number: US-BAXTER-2011BH029245

PATIENT
  Age: 77 Year
  Sex: Female

DRUGS (1)
  1. DIANEAL [Suspect]
     Indication: PERITONEAL DIALYSIS
     Route: 033
     Dates: start: 20110101

REACTIONS (7)
  - BLOOD SODIUM ABNORMAL [None]
  - BLOOD PHOSPHORUS ABNORMAL [None]
  - BLOOD ALBUMIN ABNORMAL [None]
  - BLOOD UREA ABNORMAL [None]
  - BLOOD CREATININE ABNORMAL [None]
  - BLOOD POTASSIUM INCREASED [None]
  - MENTAL DISORDER [None]
